FAERS Safety Report 4906743-5 (Version None)
Quarter: 2006Q1

REPORT INFORMATION
  Report Type: 
  Country: None (occurrence: None)
  Receive Date: 20060206
  Receipt Date: 20060126
  Transmission Date: 20060701
  Serious: Yes (Hospitalization, Disabling, Other)
  Sender: FDA-Public Use
  Company Number: 216935

PATIENT
  Age: 31 Year
  Sex: Male

DRUGS (7)
  1. EFALIZUMAB (EFALIZUMAB) PWDR + SOLVENT, INJECTION SOLN, 125MG [Suspect]
     Indication: PSORIASIS
     Dosage: 1 MG/KG, 1/ WEEK, SUBCUTANEOUS
     Route: 058
     Dates: start: 20041230, end: 20050609
  2. CLOBETASOL OINTMENT (CLOBETASOL PROPIONATE) [Concomitant]
  3. PETROLEUM JELLY (PETROLATUM) [Concomitant]
  4. NON-STEROIDAL ANTI-INFLAMMATORY DRUG NOS (NON-STEROIDAL ANTI-INFLAMMAT [Concomitant]
  5. LORATADINE [Concomitant]
  6. HYDROXYZINE [Concomitant]
  7. SOFT PARAFFIN (PARAFFIN) [Concomitant]

REACTIONS (4)
  - DIPLOPIA [None]
  - INFLUENZA LIKE ILLNESS [None]
  - MYELITIS TRANSVERSE [None]
  - NYSTAGMUS [None]
